FAERS Safety Report 12635428 (Version 2)
Quarter: 2016Q3

REPORT INFORMATION
  Report Type: Report from Study
  Country: DE (occurrence: DE)
  Receive Date: 20160808
  Receipt Date: 20160909
  Transmission Date: 20161109
  Serious: Yes (Other)
  Sender: FDA-Public Use
  Company Number: PHHY2016DE108072

PATIENT
  Sex: Male

DRUGS (2)
  1. ELIQUIS [Concomitant]
     Active Substance: APIXABAN
     Indication: PRODUCT USED FOR UNKNOWN INDICATION
     Route: 065
  2. GLIVEC [Suspect]
     Active Substance: IMATINIB MESYLATE
     Indication: CHRONIC MYELOID LEUKAEMIA
     Dosage: 400 MG, QD
     Route: 065
     Dates: start: 201508

REACTIONS (4)
  - Proctalgia [Unknown]
  - Anal fistula [Unknown]
  - Impaired healing [Unknown]
  - Rectal abscess [Unknown]

NARRATIVE: CASE EVENT DATE: 20151118
